FAERS Safety Report 12987827 (Version 1)
Quarter: 2016Q4

REPORT INFORMATION
  Report Type: Spontaneous
  Country: AU (occurrence: AU)
  Receive Date: 20161130
  Receipt Date: 20161130
  Transmission Date: 20170207
  Serious: Yes (Other)
  Sender: FDA-Public Use
  Company Number: PHHY2016AU159019

PATIENT
  Age: 52 Year
  Sex: Female

DRUGS (2)
  1. OCTREOTIDE. [Suspect]
     Active Substance: OCTREOTIDE
     Dosage: 100 UG, UNK
     Route: 065
     Dates: start: 2016
  2. OCTREOTIDE. [Suspect]
     Active Substance: OCTREOTIDE
     Indication: CARCINOID TUMOUR
     Dosage: UNK
     Route: 065
     Dates: start: 2005, end: 2012

REACTIONS (15)
  - Second primary malignancy [Unknown]
  - Adenocarcinoma [Unknown]
  - Pain [Not Recovered/Not Resolved]
  - Tumour marker increased [Unknown]
  - Diarrhoea [Unknown]
  - Salivary gland neoplasm [Unknown]
  - Flushing [Unknown]
  - Abdominal lymphadenopathy [Unknown]
  - Facial paralysis [Unknown]
  - Neuroendocrine tumour [Unknown]
  - Malignant neoplasm progression [Unknown]
  - Metastases to liver [Unknown]
  - Facial pain [Unknown]
  - Lymphadenopathy [Unknown]
  - Palpitations [Unknown]

NARRATIVE: CASE EVENT DATE: 2008
